FAERS Safety Report 12532009 (Version 1)
Quarter: 2016Q3

REPORT INFORMATION
  Report Type: Other
  Country: IT (occurrence: IT)
  Receive Date: 20160706
  Receipt Date: 20160706
  Transmission Date: 20161109
  Serious: Yes (Hospitalization, Other)
  Sender: FDA-Public Use
  Company Number: IT-APOTEX-2016AP009501

PATIENT
  Age: 28 Year
  Sex: Female

DRUGS (1)
  1. QUETIAPINA DOC GENERICI COMPRESSE RIVESTITE CON FILM [Suspect]
     Active Substance: QUETIAPINE
     Indication: INTENTIONAL SELF-INJURY
     Dosage: 1000 MG, TOTAL
     Route: 048
     Dates: start: 20160514, end: 20160514

REACTIONS (5)
  - Intentional overdose [Unknown]
  - Intentional self-injury [Unknown]
  - Drug abuse [Unknown]
  - Confusional state [Unknown]
  - Toxicity to various agents [Unknown]

NARRATIVE: CASE EVENT DATE: 20160514
